FAERS Safety Report 7878448-2 (Version None)
Quarter: 2011Q4

REPORT INFORMATION
  Report Type: 
  Country: None (occurrence: None)
  Receive Date: 20111028
  Receipt Date: 20110709
  Transmission Date: 20120403
  Serious: Yes (Hospitalization)
  Sender: FDA-Public Use
  Company Number: 2011AP001442

PATIENT
  Age: 35 Year
  Sex: Female

DRUGS (7)
  1. OLANZAPINE [Suspect]
     Indication: PRODUCT USED FOR UNKNOWN INDICATION
     Dosage: 20 MG;BID;PO
     Route: 048
  2. PERPHENAZINE [Suspect]
     Indication: PRODUCT USED FOR UNKNOWN INDICATION
     Dosage: 16 MG;TID;PO
     Route: 048
  3. VALPROIC ACID [Concomitant]
  4. RISPERIDONE [Suspect]
     Indication: PRODUCT USED FOR UNKNOWN INDICATION
     Dosage: 4 MG;TID;PO 4 MG;BID;PO
     Route: 048
  5. LITHIUM CARBONATE [Suspect]
     Indication: PRODUCT USED FOR UNKNOWN INDICATION
     Dosage: 600 MG;BID;PO
     Route: 048
  6. HALOPERIDOL [Suspect]
     Indication: AGITATION
     Dosage: 5 MG;PRN
  7. BENZTROPINE MESYLATE [Suspect]
     Indication: EXTRAPYRAMIDAL DISORDER
     Dosage: 1 MG;TID;PO 0.5 MG;BID;PO
     Route: 048

REACTIONS (1)
  - ILEUS PARALYTIC [None]
